FAERS Safety Report 7811594-8 (Version None)
Quarter: 2011Q4

REPORT INFORMATION
  Report Type: 
  Country: None (occurrence: None)
  Receive Date: 20111011
  Receipt Date: 20111011
  Transmission Date: 20120403
  Serious: Yes (Hospitalization, Other)
  Sender: FDA-Public Use
  Company Number: 2011SP022055

PATIENT
  Age: 75 Year
  Sex: Male

DRUGS (8)
  1. ZOLPIDEM TARTRATE [Concomitant]
  2. NIFEDIPINE [Concomitant]
  3. PERIDOPRIL ERBUMINE [Concomitant]
  4. EZETIMIBE [Concomitant]
  5. MIRTAZAPINE [Suspect]
     Indication: DEPRESSION
     Dosage: PO
     Route: 048
     Dates: start: 20110418
  6. BROTIZOLAM [Concomitant]
  7. PITAVASTATIN CALCIUM [Concomitant]
  8. DILAZEP [Concomitant]

REACTIONS (7)
  - URINARY RETENTION [None]
  - ABDOMINAL DISCOMFORT [None]
  - ILEUS PARALYTIC [None]
  - HYPERVENTILATION [None]
  - PSYCHOSOMATIC DISEASE [None]
  - INCORRECT DOSE ADMINISTERED [None]
  - CONSTIPATION [None]
